FAERS Safety Report 5509080-3 (Version None)
Quarter: 2007Q4

REPORT INFORMATION
  Report Type: 
  Country: None (occurrence: None)
  Receive Date: 20071026
  Receipt Date: 20070705
  Transmission Date: 20080405
  Serious: Yes (Life-Threatening)
  Sender: FDA-Public Use
  Company Number: CLOF-10589

PATIENT
  Age: 53 Year
  Sex: Female
  Weight: 76.8 kg

DRUGS (17)
  1. CLOFARABINE. MFR: GENZYME [Suspect]
     Indication: ACUTE MYELOID LEUKAEMIA
     Dosage: 40 MG/M2 QD X 5 IV
     Route: 042
     Dates: start: 20070525, end: 20070529
  2. CYTARABINE [Suspect]
     Indication: ACUTE MYELOID LEUKAEMIA
     Dosage: 40 MG/M2 QD X 5 IV
     Route: 042
     Dates: start: 20070525, end: 20070529
  3. ZOFRAN [Concomitant]
  4. COMPAZINE [Concomitant]
  5. CEFEPIME [Concomitant]
  6. VANCOMYCIN [Concomitant]
  7. METOPROLOL [Concomitant]
  8. PROTONIX [Concomitant]
  9. ATIVAN [Concomitant]
  10. MICAFUNGIN [Concomitant]
  11. POTASSIUM CHLORIDE [Concomitant]
  12. LORAZEPAM [Concomitant]
  13. SODIUM BICARBONATE [Concomitant]
  14. VYTORIN [Concomitant]
  15. FUROSEMIDE [Concomitant]
  16. ETOMIDATE [Concomitant]
  17. PROPOFOL [Concomitant]

REACTIONS (1)
  - DYSPNOEA [None]
